FAERS Safety Report 9769315 (Version 1)
Quarter: 2013Q4

REPORT INFORMATION
  Report Type: Spontaneous
  Country: AT (occurrence: AT)
  Receive Date: 20131218
  Receipt Date: 20131218
  Transmission Date: 20140711
  Serious: Yes (Other)
  Sender: FDA-Public Use
  Company Number: AT-UCBSA-105971

PATIENT
  Sex: 0

DRUGS (1)
  1. LACOSAMIDE [Suspect]
     Indication: PARTIAL SEIZURES
     Dosage: MEAN DOSE: 11.5 MG/KG/DAY; MEAN DURATION: 18 MONTHS

REACTIONS (1)
  - Convulsion [Unknown]
